FAERS Safety Report 15689852 (Version 16)
Quarter: 2024Q4

REPORT INFORMATION
  Report Type: Spontaneous
  Country: US (occurrence: US)
  Receive Date: 20181205
  Receipt Date: 20241212
  Transmission Date: 20250114
  Serious: No
  Sender: PFIZER
  Company Number: US-PFIZER INC-2017398804

PATIENT
  Age: 74 Year
  Sex: Male
  Weight: 82 kg

DRUGS (16)
  1. SOMAVERT [Suspect]
     Active Substance: PEGVISOMANT
     Indication: Acromegaly
     Dosage: 20 MG, FIVE DAYS PER WEEK
     Route: 058
     Dates: start: 2012
  2. SOMAVERT [Suspect]
     Active Substance: PEGVISOMANT
     Indication: Gigantism
     Dosage: 20 MG, FIVE DAYS PER WEEK
     Route: 058
     Dates: start: 20150813
  3. SOMAVERT [Suspect]
     Active Substance: PEGVISOMANT
     Dosage: 20 MG, DAILY
     Route: 058
     Dates: start: 2016
  4. SOMAVERT [Suspect]
     Active Substance: PEGVISOMANT
     Dosage: 20 MG, 5 DAYS A WEEK
     Route: 058
     Dates: start: 2016
  5. SOMAVERT [Suspect]
     Active Substance: PEGVISOMANT
     Dosage: 20 MG, FIVE DAYS PER WEEK
     Dates: start: 20161213
  6. SOMAVERT [Suspect]
     Active Substance: PEGVISOMANT
     Dosage: 20 MG, FIVE DAYS PER WEEK
     Route: 058
     Dates: start: 20161213
  7. SOMAVERT [Suspect]
     Active Substance: PEGVISOMANT
     Dosage: 20 MG, 6 DAYS A WEEK
     Dates: start: 20170906
  8. SOMAVERT [Suspect]
     Active Substance: PEGVISOMANT
     Dosage: 20MG 3X A WEEK
  9. SOMAVERT [Suspect]
     Active Substance: PEGVISOMANT
     Dosage: 20 MG/DAY, 5 DAYS PER WEEK
     Dates: start: 20240530
  10. FORTEO [Concomitant]
     Active Substance: TERIPARATIDE
     Indication: Mineral supplementation
     Dosage: 20 UG, DAILY
     Route: 058
     Dates: start: 201601
  11. CALCIUM\VITAMIN D [Concomitant]
     Active Substance: CALCIUM\VITAMIN D
     Dosage: UNK
  12. LATANOPROST [Concomitant]
     Active Substance: LATANOPROST
     Dosage: UNK
  13. PEPCID [Concomitant]
     Active Substance: FAMOTIDINE
     Dosage: 20 MG
  14. PROLIA [Concomitant]
     Active Substance: DENOSUMAB
     Dosage: 60 UNK
  15. VITAMIN D NOS [Concomitant]
     Active Substance: CHOLECALCIFEROL\ERGOCALCIFEROL
     Dosage: 2000 IU
  16. COVID-19 VACCINE [Concomitant]
     Indication: COVID-19 immunisation
     Dosage: HAD ALL MY SHOTS AND I HAD ALL MY BOOSTERS

REACTIONS (5)
  - Insulin-like growth factor increased [Unknown]
  - COVID-19 [Unknown]
  - Off label use [Unknown]
  - Product dose omission issue [Unknown]
  - Product dispensing error [Unknown]

NARRATIVE: CASE EVENT DATE: 20170120
